FAERS Safety Report 13871633 (Version 1)
Quarter: 2017Q3

REPORT INFORMATION
  Report Type: Spontaneous
  Country: US (occurrence: US)
  Receive Date: 20170816
  Receipt Date: 20170816
  Transmission Date: 20171127
  Serious: No
  Sender: FDA-Public Use
  Company Number: US-BAYER-2017-153966

PATIENT
  Sex: Female

DRUGS (1)
  1. CLIMARA [Suspect]
     Active Substance: ESTRADIOL
     Dosage: 0.05 MG, UNK
     Route: 062

REACTIONS (5)
  - Fatigue [Unknown]
  - Rash [Unknown]
  - Product adhesion issue [Unknown]
  - Pruritus [Unknown]
  - Headache [Unknown]
